FAERS Safety Report 9717380 (Version 1)
Quarter: 2013Q4

REPORT INFORMATION
  Report Type: Spontaneous
  Country: US (occurrence: US)
  Receive Date: 20131127
  Receipt Date: 20131127
  Transmission Date: 20140711
  Serious: No
  Sender: FDA-Public Use
  Company Number: US-GILEAD-2008-0019594

PATIENT
  Sex: Female
  Weight: 63.5 kg

DRUGS (6)
  1. LETAIRIS [Suspect]
     Indication: PULMONARY ARTERIAL HYPERTENSION
     Route: 048
     Dates: start: 20071212
  2. VIAGRA [Concomitant]
  3. BACTRIM [Concomitant]
  4. LEVOTHYROXINE [Concomitant]
  5. CELEXA [Concomitant]
  6. PROTONIX [Concomitant]

REACTIONS (1)
  - Nasal congestion [None]
